APPROVED DRUG PRODUCT: BACLOFEN
Active Ingredient: BACLOFEN
Strength: 5MG
Dosage Form/Route: TABLET;ORAL
Application: A217788 | Product #003 | TE Code: AB
Applicant: RISING PHARMA HOLDINGS INC
Approved: Oct 24, 2024 | RLD: No | RS: No | Type: RX